FAERS Safety Report 17896203 (Version 1)
Quarter: 2020Q2

REPORT INFORMATION
  Report Type: Spontaneous
  Country: GB (occurrence: GB)
  Receive Date: 20200615
  Receipt Date: 20200615
  Transmission Date: 20200714
  Serious: Yes (Other)
  Sender: FDA-Public Use
  Company Number: GB-PFIZER INC-2020230141

PATIENT
  Sex: Male

DRUGS (1)
  1. GABAPENTIN. [Suspect]
     Active Substance: GABAPENTIN
     Dosage: 1800 UG, 1X/DAY
     Route: 048

REACTIONS (6)
  - Dyspnoea [Unknown]
  - Malaise [Unknown]
  - Panic attack [Unknown]
  - Head injury [Unknown]
  - Product dispensing error [Unknown]
  - Palpitations [Unknown]
